FAERS Safety Report 25049957 (Version 2)
Quarter: 2025Q2

REPORT INFORMATION
  Report Type: Spontaneous
  Country: PT (occurrence: PT)
  Receive Date: 20250307
  Receipt Date: 20250401
  Transmission Date: 20250716
  Serious: Yes (Other)
  Sender: JOHNSON AND JOHNSON
  Company Number: None

PATIENT
  Age: 26 Year
  Sex: Female
  Weight: 50 kg

DRUGS (3)
  1. REMICADE [Suspect]
     Active Substance: INFLIXIMAB
     Indication: Autoimmune disorder
     Dosage: 8/8 WEEKS; ALWAYS WITH SLOW INFUSION (~3H)
     Route: 041
     Dates: start: 20240515, end: 20250103
  2. REMICADE [Suspect]
     Active Substance: INFLIXIMAB
     Dosage: 8/8 WEEKS. ON 28/02 IT WOULD BE THE 7TH DOSE. FOR THE FIRST TIME, THE INFUSION STARTED ON A RAPID SC
     Route: 042
     Dates: start: 20250228, end: 20250228
  3. REMICADE [Suspect]
     Active Substance: INFLIXIMAB
     Route: 042
     Dates: start: 20250314, end: 20250314

REACTIONS (5)
  - Erythema [Recovered/Resolved]
  - Localised oedema [Recovered/Resolved]
  - Flushing [Recovered/Resolved]
  - Face oedema [Recovered/Resolved]
  - Flushing [Recovered/Resolved]

NARRATIVE: CASE EVENT DATE: 20250228
